FAERS Safety Report 4309731-5 (Version None)
Quarter: 2004Q1

REPORT INFORMATION
  Report Type: 
  Country: None (occurrence: None)
  Receive Date: 20040301
  Receipt Date: 20040217
  Transmission Date: 20041129
  Serious: Yes (Other)
  Sender: FDA-Public Use
  Company Number: 2004011353

PATIENT
  Sex: Male

DRUGS (2)
  1. TAHOR (ATORVASTATIN) [Suspect]
     Indication: ILL-DEFINED DISORDER
  2. DURG, UNSPECIFIED [Concomitant]

REACTIONS (3)
  - DEMYELINATION [None]
  - DIFFICULTY IN WALKING [None]
  - RHABDOMYOLYSIS [None]
